FAERS Safety Report 10573732 (Version 1)
Quarter: 2014Q4

REPORT INFORMATION
  Report Type: Spontaneous
  Country: US (occurrence: None)
  Receive Date: 20141030
  Receipt Date: 20141030
  Transmission Date: 20150529
  Serious: Yes (Other)
  Sender: FDA-Public Use
  Company Number: PHEH2014US013123

PATIENT
  Age: 55 Year
  Sex: Male

DRUGS (2)
  1. ZOMETA [Suspect]
     Active Substance: ZOLEDRONIC ACID
     Indication: PROSTATE CANCER
  2. LUPRON [Suspect]
     Active Substance: LEUPROLIDE ACETATE
     Indication: PROSTATE CANCER
     Dosage: 1 IN 3 MONTHS
     Dates: start: 2008, end: 201401

REACTIONS (6)
  - Malignant neoplasm progression [None]
  - Bone pain [None]
  - Prostate cancer [None]
  - Fatigue [None]
  - Drug ineffective [None]
  - Hot flush [None]

NARRATIVE: CASE EVENT DATE: 2008
